FAERS Safety Report 15318242 (Version 1)
Quarter: 2018Q3

REPORT INFORMATION
  Report Type: Spontaneous
  Country: US (occurrence: US)
  Receive Date: 20180817
  Receipt Date: 20180817
  Transmission Date: 20181010
  Serious: Yes (Hospitalization)
  Sender: FDA-Public Use
  Company Number: None

PATIENT
  Age: 69 Year
  Sex: Male
  Weight: 109.7 kg

DRUGS (1)
  1. NAFCILLIN [Suspect]
     Active Substance: NAFCILLIN\NAFCILLIN SODIUM
     Indication: COMPLICATION ASSOCIATED WITH DEVICE
     Route: 042
     Dates: start: 20160428, end: 20160504

REACTIONS (2)
  - Tubulointerstitial nephritis [None]
  - Complication associated with device [None]

NARRATIVE: CASE EVENT DATE: 20160505
